FAERS Safety Report 8648840 (Version 3)
Quarter: 2012Q4

REPORT INFORMATION
  Report Type: 
  Country: US (occurrence: US)
  Receive Date: 20120704
  Receipt Date: 20120914
  Transmission Date: 20130627
  Serious: Yes (Hospitalization)
  Sender: FDA-Public Use
  Company Number: US-BIOGENIDEC-2012BI022781

PATIENT
  Age: 63 Year
  Sex: Female

DRUGS (4)
  1. AVONEX [Suspect]
     Indication: MULTIPLE SCLEROSIS
     Route: 030
     Dates: start: 19970401, end: 2003
  2. AVONEX [Suspect]
     Indication: MULTIPLE SCLEROSIS
     Route: 030
     Dates: start: 2003, end: 201206
  3. AVONEX [Suspect]
     Indication: MULTIPLE SCLEROSIS
     Route: 030
     Dates: start: 201206
  4. BLOOD PRESSURE MEDICATION (NOS) [Concomitant]
     Indication: HYPERTENSION

REACTIONS (8)
  - Colitis ischaemic [Recovered/Resolved]
  - Blood pressure increased [Recovered/Resolved]
  - H1N1 influenza [Recovered/Resolved]
  - Pneumonia [Not Recovered/Not Resolved]
  - Nasopharyngitis [Recovered/Resolved]
  - Decreased immune responsiveness [Unknown]
  - Weight decreased [Unknown]
  - Influenza like illness [Recovered/Resolved]
